FAERS Safety Report 20680459 (Version 1)
Quarter: 2022Q2

REPORT INFORMATION
  Report Type: Spontaneous
  Country: FR (occurrence: FR)
  Receive Date: 20220406
  Receipt Date: 20220406
  Transmission Date: 20220721
  Serious: Yes (Life-Threatening)
  Sender: FDA-Public Use
  Company Number: None

PATIENT
  Age: 53 Year
  Sex: Female

DRUGS (3)
  1. ZYPADHERA [Suspect]
     Active Substance: OLANZAPINE PAMOATE
     Indication: Schizophrenia
     Dosage: 1 DOSAGE FORM, OTHER, EVERY 15 DAYS
     Route: 030
     Dates: start: 20220301, end: 20220301
  2. ZYPADHERA [Suspect]
     Active Substance: OLANZAPINE PAMOATE
     Indication: Schizophrenia
     Dosage: 1 DOSAGE FORM, OTHER, EVERY 15 DAYS
     Route: 030
     Dates: start: 20220301, end: 20220301
  3. ZYPADHERA [Suspect]
     Active Substance: OLANZAPINE PAMOATE
     Indication: Schizophrenia
     Dosage: 1 DOSAGE FORM, OTHER, EVERY 15 DAYS
     Route: 030
     Dates: start: 20220301, end: 20220301

REACTIONS (4)
  - Circulatory collapse [Recovered/Resolved]
  - Syncope [Recovered/Resolved]
  - Immediate post-injection reaction [Recovered/Resolved]
  - Hypotension [Recovered/Resolved]

NARRATIVE: CASE EVENT DATE: 20220301
